FAERS Safety Report 23534971 (Version 2)
Quarter: 2024Q1

REPORT INFORMATION
  Report Type: Spontaneous
  Country: HU (occurrence: HU)
  Receive Date: 20240217
  Receipt Date: 20240226
  Transmission Date: 20240409
  Serious: Yes (Life-Threatening)
  Sender: FDA-Public Use
  Company Number: HU-Accord-402797

PATIENT
  Age: 50 Year
  Sex: Male
  Weight: 102 kg

DRUGS (9)
  1. OXALIPLATIN [Suspect]
     Active Substance: OXALIPLATIN
     Indication: Colorectal cancer
     Dosage: STRENGTH: 5MG/ML 40ML BOTTLE (200MG), BIWEEKLY
     Route: 042
     Dates: start: 20231204
  2. LEUCOVORIN [Concomitant]
     Active Substance: LEUCOVORIN\LEUCOVORIN CALCIUM
     Indication: Colorectal cancer
     Dosage: STRENGTH: 10
     Route: 042
     Dates: start: 20231204
  3. SOLU-MEDROL [Concomitant]
     Active Substance: METHYLPREDNISOLONE SODIUM SUCCINATE
     Indication: Premedication
     Dosage: STRENGTH: 40 MG
     Route: 042
     Dates: start: 20231204
  4. FAMOTIDINE [Concomitant]
     Active Substance: FAMOTIDINE
     Indication: Premedication
     Dosage: STRENGTH: 20 MG
     Route: 042
     Dates: start: 20231204
  5. FLUOROURACIL [Concomitant]
     Active Substance: FLUOROURACIL
     Indication: Colorectal cancer
     Route: 042
     Dates: start: 20231204
  6. CHLOROPYRAMINE HYDROCHLORIDE [Concomitant]
     Active Substance: CHLOROPYRAMINE HYDROCHLORIDE
     Indication: Premedication
     Dosage: STRENGTH: 20
     Dates: start: 2023
  7. Cormagnesin [Concomitant]
     Indication: Premedication
     Dosage: STRENGTH: 0.20475
     Dates: start: 2023
  8. ONDANSETRON HYDROCHLORIDE [Concomitant]
     Active Substance: ONDANSETRON HYDROCHLORIDE
     Indication: Premedication
     Dosage: STRENGTH: 2
     Dates: start: 2023
  9. METOCLOPRAMIDE HYDROCHLORIDE [Concomitant]
     Active Substance: METOCLOPRAMIDE HYDROCHLORIDE
     Indication: Premedication
     Dosage: STRENGTH: 5
     Dates: start: 2023

REACTIONS (6)
  - Product quality issue [Unknown]
  - Chest pain [Recovered/Resolved]
  - Skin discolouration [Recovered/Resolved]
  - Hypersensitivity [Recovered/Resolved]
  - Hyperhidrosis [Recovered/Resolved]
  - Anaphylactic reaction [Recovered/Resolved]

NARRATIVE: CASE EVENT DATE: 20240102
